FAERS Safety Report 17198467 (Version 2)
Quarter: 2019Q4

REPORT INFORMATION
  Report Type: Report from Study
  Country: US (occurrence: US)
  Receive Date: 20191225
  Receipt Date: 20191227
  Transmission Date: 20200122
  Serious: Yes (Other)
  Sender: FDA-Public Use
  Company Number: US-ROCHE-2500971

PATIENT
  Age: 67 Year
  Sex: Female

DRUGS (2)
  1. OCREVUS [Suspect]
     Active Substance: OCRELIZUMAB
     Indication: RELAPSING-REMITTING MULTIPLE SCLEROSIS
     Dosage: NEXT DATE OF ADMINISTRATION: 11/DEC/2018?ONGOING YES
     Route: 042
     Dates: start: 20181127
  2. OCREVUS [Suspect]
     Active Substance: OCRELIZUMAB
     Dosage: ON HOLD TILL JANUARY 2020 ;ONGOING: NO
     Route: 042
     Dates: start: 20190624

REACTIONS (10)
  - Ear pain [Recovered/Resolved]
  - Herpes zoster [Recovering/Resolving]
  - Dizziness [Recovered/Resolved]
  - Sinusitis bacterial [Recovering/Resolving]
  - Meningioma [Not Recovered/Not Resolved]
  - Ear infection [Recovering/Resolving]
  - Neuralgia [Not Recovered/Not Resolved]
  - Skin lesion [Unknown]
  - Headache [Recovered/Resolved]
  - Eye pain [Recovered/Resolved]

NARRATIVE: CASE EVENT DATE: 201909
